FAERS Safety Report 22241675 (Version 3)
Quarter: 2023Q2

REPORT INFORMATION
  Report Type: Report from Study
  Country: US (occurrence: US)
  Receive Date: 20230421
  Receipt Date: 20230626
  Transmission Date: 20230722
  Serious: Yes (Other)
  Sender: FDA-Public Use
  Company Number: US-002147023-NVSC2023US086923

PATIENT
  Sex: Female

DRUGS (1)
  1. KESIMPTA [Suspect]
     Active Substance: OFATUMUMAB
     Indication: Product used for unknown indication
     Dosage: UNK
     Route: 065

REACTIONS (9)
  - Kidney infection [Unknown]
  - Urinary tract infection [Unknown]
  - Oral herpes [Unknown]
  - Contusion [Unknown]
  - Peripheral swelling [Unknown]
  - Blood glucose increased [Unknown]
  - Hand fracture [Unknown]
  - Peripheral coldness [Unknown]
  - Skin discolouration [Unknown]
